FAERS Safety Report 13357777 (Version 1)
Quarter: 2017Q1

REPORT INFORMATION
  Report Type: Spontaneous
  Country: US (occurrence: US)
  Receive Date: 20170320
  Receipt Date: 20170320
  Transmission Date: 20170429
  Serious: No
  Sender: FDA-Public Use
  Company Number: None

PATIENT
  Age: 67 Year
  Sex: Female

DRUGS (1)
  1. OPSUMIT [Suspect]
     Active Substance: MACITENTAN
     Indication: PULMONARY ARTERIAL HYPERTENSION
     Route: 048
     Dates: start: 20161117, end: 20170213

REACTIONS (4)
  - Confusional state [None]
  - Nausea [None]
  - Subdural haematoma [None]
  - Headache [None]

NARRATIVE: CASE EVENT DATE: 20170313
